FAERS Safety Report 16148897 (Version 1)
Quarter: 2019Q2

REPORT INFORMATION
  Report Type: Spontaneous
  Country: US (occurrence: US)
  Receive Date: 20190402
  Receipt Date: 20190402
  Transmission Date: 20190711
  Serious: No
  Sender: FDA-Public Use
  Company Number: US-BAYER-2019-062221

PATIENT
  Age: 68 Year
  Sex: Female
  Weight: 58 kg

DRUGS (2)
  1. MIRALAX [Suspect]
     Active Substance: POLYETHYLENE GLYCOL 3350
     Dosage: UNK, 17G MIXED WITH METAMUCIL IN 8 OZ WA
     Route: 048
  2. METAMUCIL [Concomitant]
     Active Substance: PLANTAGO SEED
     Dosage: UNK

REACTIONS (6)
  - Wrong technique in product usage process [Unknown]
  - Incorrect dosage administered [Unknown]
  - Faeces soft [Unknown]
  - Faeces hard [Unknown]
  - Product use in unapproved indication [Unknown]
  - Product prescribing error [Unknown]
